FAERS Safety Report 8379933-X (Version None)
Quarter: 2012Q2

REPORT INFORMATION
  Report Type: 
  Country: None (occurrence: None)
  Receive Date: 20120523
  Receipt Date: 20120521
  Transmission Date: 20120825
  Serious: Yes (Other)
  Sender: FDA-Public Use
  Company Number: US-PFIZER INC-2012123454

PATIENT
  Age: 45 Year
  Sex: Male

DRUGS (1)
  1. CELEBREX [Suspect]
     Indication: BACK PAIN
     Dosage: 200 MG, DAILY

REACTIONS (3)
  - HAEMORRHAGIC DISORDER [None]
  - PLATELET DISORDER [None]
  - ABDOMINAL DISCOMFORT [None]
